FAERS Safety Report 15506192 (Version 1)
Quarter: 2018Q4

REPORT INFORMATION
  Report Type: Spontaneous
  Country: US (occurrence: US)
  Receive Date: 20181010
  Receipt Date: 20181010
  Transmission Date: 20190205
  Serious: Yes (Other)
  Sender: FDA-Public Use
  Company Number: None

PATIENT

DRUGS (1)
  1. HYDROCO/APAP 5-325MG [Suspect]
     Active Substance: ACETAMINOPHEN\HYDROCODONE

REACTIONS (5)
  - Swelling [None]
  - Inadequate analgesia [None]
  - Pain [None]
  - Condition aggravated [None]
  - Anger [None]

NARRATIVE: CASE EVENT DATE: 20181010
